FAERS Safety Report 4322328-6 (Version None)
Quarter: 2004Q1

REPORT INFORMATION
  Report Type: 
  Country: None (occurrence: None)
  Receive Date: 20040319
  Receipt Date: 20040309
  Transmission Date: 20041129
  Serious: Yes (Hospitalization, Other)
  Sender: FDA-Public Use
  Company Number: GB-JNJFOC-20040302048

PATIENT
  Age: 76 Year
  Sex: Female

DRUGS (4)
  1. REMICADE [Suspect]
     Indication: RHEUMATOID ARTHRITIS
     Dosage: 160 MG, INTRAVENOUS
     Route: 042
     Dates: start: 20020527, end: 20020901
  2. SULFASALAZINE [Concomitant]
  3. CELEBREX [Concomitant]
  4. METHOTREXATE [Concomitant]

REACTIONS (1)
  - PYODERMA GANGRENOSUM [None]
